FAERS Safety Report 5199856-7 (Version None)
Quarter: 2007Q1

REPORT INFORMATION
  Report Type: 
  Country: None (occurrence: None)
  Receive Date: 20070103
  Receipt Date: 20070103
  Transmission Date: 20070707
  Serious: Yes (Other)
  Sender: FDA-Public Use
  Company Number: None

PATIENT
  Age: 61 Year
  Sex: Male
  Weight: 84.369 kg

DRUGS (2)
  1. INDOMETHACIN [Suspect]
     Indication: GOUT
     Dosage: 1 CAPSULE 8 HOURS PO
     Route: 048
     Dates: start: 20061228, end: 20061228
  2. INDOMETHACIN [Suspect]
     Indication: PAIN IN EXTREMITY
     Dosage: 1 CAPSULE 8 HOURS PO
     Route: 048
     Dates: start: 20061228, end: 20061228

REACTIONS (9)
  - APHASIA [None]
  - DIZZINESS [None]
  - EMOTIONAL DISTRESS [None]
  - FEAR [None]
  - FEELING ABNORMAL [None]
  - GASTROINTESTINAL NEOPLASM [None]
  - HYPERHIDROSIS [None]
  - PALPITATIONS [None]
  - TREMOR [None]
